FAERS Safety Report 5689230-9 (Version None)
Quarter: 2008Q1

REPORT INFORMATION
  Report Type: 
  Country: None (occurrence: None)
  Receive Date: 20080331
  Receipt Date: 20080319
  Transmission Date: 20080703
  Serious: Yes (Death, Other)
  Sender: FDA-Public Use
  Company Number: GB-ROCHE-546963

PATIENT
  Age: 70 Year
  Sex: Female

DRUGS (9)
  1. XELODA [Suspect]
     Indication: BREAST CANCER
     Dosage: 75% REDUCED DOSE
     Route: 048
     Dates: start: 20080207, end: 20080209
  2. GABAPENTIN [Concomitant]
     Route: 048
     Dates: start: 20071201, end: 20080209
  3. AMITRIPTYLINE HCL [Concomitant]
     Route: 048
     Dates: start: 20071201, end: 20080209
  4. SIMVASTATIN [Concomitant]
     Route: 048
     Dates: end: 20080209
  5. ACETAMINOPHEN [Concomitant]
     Indication: PAIN
     Dates: start: 20071201, end: 20080209
  6. DEXAMETHASONE TAB [Concomitant]
     Indication: PAIN
     Dates: start: 20070101, end: 20080209
  7. METHYLPHENIDATE HCL [Concomitant]
     Dates: start: 20070101, end: 20080209
  8. OXYCONTIN [Concomitant]
     Indication: PAIN
     Dates: start: 20070101, end: 20080209
  9. DICLOFENAC [Concomitant]
     Indication: PAIN
     Dates: start: 20071201, end: 20080209

REACTIONS (2)
  - ENCEPHALOPATHY [None]
  - LARGE INTESTINE PERFORATION [None]
